FAERS Safety Report 24651066 (Version 2)
Quarter: 2024Q4

REPORT INFORMATION
  Report Type: Spontaneous
  Country: ES (occurrence: ES)
  Receive Date: 20241122
  Receipt Date: 20241219
  Transmission Date: 20250115
  Serious: Yes (Life-Threatening)
  Sender: AUROBINDO
  Company Number: ES-AEMPS-1592772

PATIENT
  Age: 46 Year
  Sex: Female

DRUGS (4)
  1. OMEPRAZOLE [Suspect]
     Active Substance: OMEPRAZOLE
     Indication: Product used for unknown indication
     Dosage: UNK(20.0 MG A-DE)
     Route: 048
     Dates: start: 20241107
  2. DEXKETOPROFEN [Concomitant]
     Active Substance: DEXKETOPROFEN
     Indication: Malaise
     Dosage: UNK(25.0 MG DECOCE)
     Route: 048
     Dates: start: 20231023
  3. Flatoril [Concomitant]
     Indication: Flatulence
     Dosage: UNK(0.5 MG A-DECOCE)
     Route: 048
     Dates: start: 20241030
  4. MAXALT [Concomitant]
     Active Substance: RIZATRIPTAN BENZOATE
     Indication: Malaise
     Dosage: UNK(10.0 MG C/72 HORAS)
     Route: 048
     Dates: start: 20231024

REACTIONS (3)
  - Dyspnoea [Recovering/Resolving]
  - Tongue oedema [Recovering/Resolving]
  - Urticaria [Recovering/Resolving]

NARRATIVE: CASE EVENT DATE: 20241107
